FAERS Safety Report 9842201 (Version 1)
Quarter: 2014Q1

REPORT INFORMATION
  Report Type: Spontaneous
  Country: US (occurrence: US)
  Receive Date: 20140124
  Receipt Date: 20140124
  Transmission Date: 20141002
  Serious: Yes (Other)
  Sender: FDA-Public Use
  Company Number: US-GLAXOSMITHKLINE-A1057079A

PATIENT
  Sex: Male

DRUGS (5)
  1. LAMOTRIGINE [Suspect]
     Indication: EPILEPSY
     Dosage: 100MG PER DAY
     Route: 048
  2. LAMICTAL XR [Suspect]
     Indication: EPILEPSY
     Dosage: 200MG PER DAY
     Route: 048
  3. TEGRETOL [Concomitant]
  4. PHENYTOIN [Concomitant]
  5. EYE DROPS [Concomitant]

REACTIONS (4)
  - Convulsion [Recovering/Resolving]
  - Balance disorder [Recovering/Resolving]
  - Hyperhidrosis [Recovering/Resolving]
  - Nervousness [Recovering/Resolving]
